FAERS Safety Report 26205044 (Version 1)
Quarter: 2025Q4

REPORT INFORMATION
  Report Type: Report from Study
  Country: US (occurrence: US)
  Receive Date: 20251227
  Receipt Date: 20251227
  Transmission Date: 20260118
  Serious: Yes (Death)
  Sender: ALEXION PHARMACEUTICALS
  Company Number: US-AstraZeneca-CH-01019794A

PATIENT
  Age: 65 Year
  Sex: Female
  Weight: 69.399 kg

DRUGS (1)
  1. CAPIVASERTIB [Suspect]
     Active Substance: CAPIVASERTIB
     Indication: Breast cancer female
     Dosage: 400 MILLIGRAM, BID
     Route: 061
     Dates: start: 20251110

REACTIONS (1)
  - Death [Fatal]

NARRATIVE: CASE EVENT DATE: 20251219
